FAERS Safety Report 25422133 (Version 1)
Quarter: 2025Q2

REPORT INFORMATION
  Report Type: Report from Study
  Country: US (occurrence: US)
  Receive Date: 20250611
  Receipt Date: 20250611
  Transmission Date: 20250716
  Serious: Yes (Other)
  Sender: ABBVIE
  Company Number: US-ABBVIE-6317630

PATIENT
  Age: 54 Year
  Sex: Female

DRUGS (1)
  1. SYNTHROID [Suspect]
     Active Substance: LEVOTHYROXINE SODIUM
     Indication: Hyperthyroidism
     Dosage: FORM STRENGTH: 25 MILLIGRAM
     Route: 048
     Dates: start: 1985, end: 2005

REACTIONS (9)
  - Eye inflammation [Recovered/Resolved]
  - Graves^ disease [Recovering/Resolving]
  - Ocular cyst [Unknown]
  - Palpitations [Unknown]
  - Diplopia [Recovered/Resolved]
  - Myocardial infarction [Unknown]
  - Insomnia [Unknown]
  - Headache [Recovered/Resolved]
  - Dry eye [Recovering/Resolving]

NARRATIVE: CASE EVENT DATE: 20080101
